FAERS Safety Report 8368844-1 (Version None)
Quarter: 2012Q2

REPORT INFORMATION
  Report Type: 
  Country: None (occurrence: None)
  Receive Date: 20120518
  Receipt Date: 20120509
  Transmission Date: 20120825
  Serious: Yes (Hospitalization)
  Sender: FDA-Public Use
  Company Number: DE-BRISTOL-MYERS SQUIBB COMPANY-16309189

PATIENT
  Age: 58 Year
  Sex: Female
  Weight: 93 kg

DRUGS (5)
  1. LEUCOVORIN CALCIUM [Concomitant]
     Indication: COLORECTAL CANCER METASTATIC
     Dosage: 15NOV11-FEB12(3MONTHS),27FEB12-ONG 307.5MG/M2
     Dates: start: 20111115
  2. FLUOROURACIL [Concomitant]
     Indication: COLORECTAL CANCER METASTATIC
     Dosage: ALSO 1200MG/M2 AS CONTI IV INFUSION,615MG/M2 AS BOLUS,3690MG/M2 AS CONT INF(1 IN 2 WK),27FEB12-ONG
     Route: 040
     Dates: start: 20111115
  3. IRINOTECAN HCL [Concomitant]
     Indication: COLORECTAL CANCER METASTATIC
     Dosage: 15NOV11-FEB12(3MONTHS),27FEB12-ONG 276.75MG/M2
     Dates: start: 20111115
  4. LEUCOVORIN CALCIUM [Concomitant]
     Indication: COLORECTAL CANCER METASTATIC
     Dates: start: 20111115
  5. ERBITUX [Suspect]
     Indication: COLORECTAL CANCER METASTATIC
     Route: 042
     Dates: start: 20111129

REACTIONS (1)
  - THROMBOSIS [None]
